FAERS Safety Report 10219960 (Version 1)
Quarter: 2014Q2

REPORT INFORMATION
  Report Type: Spontaneous
  Country: US (occurrence: US)
  Receive Date: 20140605
  Receipt Date: 20140605
  Transmission Date: 20141212
  Serious: No
  Sender: FDA-Public Use
  Company Number: US-ASTRAZENECA-2014SE36678

PATIENT
  Age: 54 Year
  Sex: Female
  Weight: 81.6 kg

DRUGS (10)
  1. CRESTOR [Suspect]
     Indication: BLOOD CHOLESTEROL INCREASED
     Route: 048
     Dates: start: 201310, end: 201401
  2. LIPITOR [Suspect]
     Dates: start: 2014, end: 2014
  3. UNSPECIFIED MEDICATION [Suspect]
     Dates: start: 2014, end: 2014
  4. LOSARTAN [Concomitant]
     Indication: HYPERTENSION
     Route: 048
  5. LOSARTAN [Concomitant]
     Indication: PROPHYLAXIS
     Route: 048
  6. METFORMIN HCL [Concomitant]
     Indication: DIABETES MELLITUS
     Route: 048
  7. GLYBURIDE [Concomitant]
     Indication: DIABETES MELLITUS
     Route: 048
  8. HYDROCHLOROTHIAZIDE [Concomitant]
     Indication: DIURETIC THERAPY
     Route: 048
  9. BABY ASPIRIN [Concomitant]
     Indication: CARDIAC DISORDER
     Dosage: UNKNOWN DAILY
     Route: 048
  10. VITAMINS [Concomitant]
     Dosage: UNKNOWN DAILY
     Route: 048

REACTIONS (10)
  - Malaise [Unknown]
  - Feeling abnormal [Unknown]
  - Anxiety [Unknown]
  - Dysstasia [Recovered/Resolved]
  - Blood cholesterol increased [Not Recovered/Not Resolved]
  - Blood glucose increased [Unknown]
  - Myalgia [Recovered/Resolved]
  - Abdominal discomfort [Recovered/Resolved]
  - Muscle spasms [Recovered/Resolved]
  - Intentional product misuse [Not Recovered/Not Resolved]
